FAERS Safety Report 20057586 (Version 1)
Quarter: 2021Q4

REPORT INFORMATION
  Report Type: Report from Study
  Country: DE (occurrence: DE)
  Receive Date: 20211111
  Receipt Date: 20211111
  Transmission Date: 20220303
  Serious: Yes (Other)
  Sender: FDA-Public Use
  Company Number: DE-002147023-PHHY2019DE187306

PATIENT
  Sex: Female
  Weight: 70.5 kg

DRUGS (3)
  1. EXEMESTANE [Suspect]
     Active Substance: EXEMESTANE
     Indication: Breast cancer
     Dosage: 25 MILLIGRAM, QD
     Route: 048
     Dates: start: 20190723
  2. KISQALI [Suspect]
     Active Substance: RIBOCICLIB
     Indication: Breast cancer metastatic
     Dosage: 600 MILLIGRAM, QD, 600 MG, QD (DAILY DOSE 21 DAYS INTAKE, 7 DAYS PAUSE)
     Route: 048
     Dates: start: 20190723
  3. LISINOPRIL [Concomitant]
     Active Substance: LISINOPRIL
     Indication: Hypertension
     Dosage: 10 MILLIGRAM, QD, 10 MG, QD
     Route: 048
     Dates: start: 20161109, end: 20190916

REACTIONS (8)
  - Leukopenia [Not Recovered/Not Resolved]
  - Pigmentation disorder [Recovered/Resolved]
  - Hypotension [Recovered/Resolved]
  - Vertigo [Not Recovered/Not Resolved]
  - Anaemia [Recovered/Resolved]
  - Vitiligo [Not Recovered/Not Resolved]
  - Abdominal pain [Recovered/Resolved]
  - Rash [Recovered/Resolved]

NARRATIVE: CASE EVENT DATE: 20190806
